FAERS Safety Report 9665761 (Version 3)
Quarter: 2014Q3

REPORT INFORMATION
  Report Type: Spontaneous
  Country: US (occurrence: US)
  Receive Date: 20131104
  Receipt Date: 20140811
  Transmission Date: 20150326
  Serious: Yes (Hospitalization, Disabling, Other)
  Sender: FDA-Public Use
  Company Number: US-009507513-1310USA012782

PATIENT
  Sex: Female
  Weight: 92.97 kg

DRUGS (1)
  1. NUVARING [Suspect]
     Active Substance: ETHINYL ESTRADIOL\ETONOGESTREL
     Indication: CONTRACEPTION
     Dosage: UNK
     Route: 067
     Dates: start: 2006

REACTIONS (6)
  - Oophorectomy [Unknown]
  - Pulmonary embolism [Unknown]
  - Fallopian tube operation [Unknown]
  - Pneumonia [Unknown]
  - Cholelithiasis [Unknown]
  - Cyst removal [Unknown]

NARRATIVE: CASE EVENT DATE: 20070123
